FAERS Safety Report 11279963 (Version 1)
Quarter: 2015Q3

REPORT INFORMATION
  Report Type: Spontaneous
  Country: JP (occurrence: JP)
  Receive Date: 20150717
  Receipt Date: 20150717
  Transmission Date: 20151125
  Serious: Yes (Death, Life-Threatening, Hospitalization, Other)
  Sender: FDA-Public Use
  Company Number: JP-MYLANLABS-2015M1023420

PATIENT

DRUGS (7)
  1. AMLODIPINE [Concomitant]
     Active Substance: AMLODIPINE BESYLATE
     Indication: BLOOD PRESSURE INCREASED
     Dosage: 2.5MG, AND THEN INCREASED
     Route: 048
  2. AMLODIPINE [Concomitant]
     Active Substance: AMLODIPINE BESYLATE
     Dosage: 5MG
     Route: 048
  3. TEMOCAPRIL [Concomitant]
     Active Substance: TEMOCAPRIL
     Indication: BLOOD PRESSURE INCREASED
     Dosage: 2MG DAY
     Route: 065
  4. SUNITINIB [Suspect]
     Active Substance: SUNITINIB
     Indication: CLEAR CELL RENAL CELL CARCINOMA
     Dosage: 50 MG/DAY, RESTARTED AT REDUCED DOSE
     Route: 065
  5. PAZOPANIB [Suspect]
     Active Substance: PAZOPANIB
     Indication: CLEAR CELL RENAL CELL CARCINOMA
     Dosage: 400 MG/DAY
     Route: 048
  6. SUNITINIB [Suspect]
     Active Substance: SUNITINIB
     Dosage: 37.5MG
     Route: 065
  7. LAPATINIB [Suspect]
     Active Substance: LAPATINIB
     Indication: CLEAR CELL RENAL CELL CARCINOMA
     Dosage: 1000 MG/DAY
     Route: 048

REACTIONS (4)
  - Thrombocytopenia [Unknown]
  - Aortic dissection [Fatal]
  - Proteinuria [Unknown]
  - Stomatitis [Unknown]
